FAERS Safety Report 7364572-X (Version None)
Quarter: 2011Q1

REPORT INFORMATION
  Report Type: 
  Country: None (occurrence: None)
  Receive Date: 20110321
  Receipt Date: 20110221
  Transmission Date: 20110831
  Serious: No
  Sender: FDA-Public Use
  Company Number: US-B.I. PHARMACEUTICALS,INC./RIDGEFIELD-2011-BP-00529BP

PATIENT
  Sex: Male

DRUGS (12)
  1. ACTOPLUS MET [Concomitant]
     Indication: DIABETES MELLITUS
  2. MIRAPEX [Suspect]
     Indication: RESTLESS LEGS SYNDROME
     Dosage: 0.5 MG
     Dates: start: 20080410
  3. MIRAPEX [Suspect]
     Dosage: 0.125 MG
     Dates: start: 20081121, end: 20081208
  4. PLAVIX [Concomitant]
     Indication: BLOOD DISORDER
     Dosage: 75 MG
  5. CELEBREX [Concomitant]
     Indication: ARTHRITIS
     Dosage: 200 MG
  6. ASPIRIN [Concomitant]
     Indication: BLOOD DISORDER
     Dosage: 81 MG
  7. PAXIL [Concomitant]
     Indication: ANXIETY
     Dosage: 20 MG
  8. ALLOPURINOL [Concomitant]
     Indication: GOUT
     Dosage: 100 MG
  9. SIMVASTATIN [Concomitant]
     Indication: BLOOD CHOLESTEROL ABNORMAL
     Dosage: 40 MG
  10. TOPROL-XL [Concomitant]
     Indication: BLOOD PRESSURE ABNORMAL
     Dosage: 25 MG
  11. AMBIEN [Concomitant]
     Indication: SLEEP DISORDER
     Dosage: 10 MG
  12. ZYRTEC ALLERGY [Concomitant]
     Indication: HYPERSENSITIVITY
     Dosage: 10 MG

REACTIONS (5)
  - URINARY INCONTINENCE [None]
  - PATHOLOGICAL GAMBLING [None]
  - GAMBLING [None]
  - CONFUSIONAL STATE [None]
  - OBSESSIVE-COMPULSIVE DISORDER [None]
